FAERS Safety Report 18816077 (Version 1)
Quarter: 2021Q1

REPORT INFORMATION
  Report Type: Spontaneous
  Country: US (occurrence: US)
  Receive Date: 20210201
  Receipt Date: 20210201
  Transmission Date: 20210419
  Serious: Yes (Disabling)
  Sender: FDA-Public Use
  Company Number: None

PATIENT
  Age: 52 Year
  Sex: Male
  Weight: 82 kg

DRUGS (3)
  1. ANGIOTENSIN?2 [Suspect]
     Active Substance: ANGIOTENSIN II
     Indication: VASOPLEGIA SYNDROME
     Dosage: ?          OTHER FREQUENCY:NG/KG/HR;?
     Route: 041
  2. ANGIOTENSIN?2 [Suspect]
     Active Substance: ANGIOTENSIN II
     Indication: COVID-19
     Dosage: ?          OTHER FREQUENCY:NG/KG/HR;?
     Route: 041
  3. MIDODRINE [Concomitant]
     Active Substance: MIDODRINE
     Dates: start: 20210101

REACTIONS (2)
  - Peripheral ischaemia [None]
  - Enterococcal bacteraemia [None]

NARRATIVE: CASE EVENT DATE: 20210131
